FAERS Safety Report 8081212-5 (Version None)
Quarter: 2012Q1

REPORT INFORMATION
  Report Type: 
  Country: None (occurrence: None)
  Receive Date: 20120130
  Receipt Date: 20120125
  Transmission Date: 20120608
  Serious: Yes (Disabling, Other)
  Sender: FDA-Public Use
  Company Number: US-PFIZER INC-2012021489

PATIENT
  Sex: Female
  Weight: 81.2 kg

DRUGS (3)
  1. LYRICA [Suspect]
     Indication: ARTHRITIS
  2. LYRICA [Suspect]
     Indication: OSTEOPOROSIS
     Dosage: 75 MG, 2X/DAY
     Route: 048
  3. WARFARIN SODIUM [Concomitant]
     Indication: ANTICOAGULANT THERAPY
     Dosage: UNK

REACTIONS (3)
  - BURNING SENSATION [None]
  - GAIT DISTURBANCE [None]
  - PAIN [None]
